FAERS Safety Report 16073612 (Version 2)
Quarter: 2019Q3

REPORT INFORMATION
  Report Type: Report from Study
  Country: US (occurrence: US)
  Receive Date: 20190314
  Receipt Date: 20190711
  Transmission Date: 20191004
  Serious: Yes (Other)
  Sender: FDA-Public Use
  Company Number: PHEH2019US010201

PATIENT
  Sex: Female

DRUGS (1)
  1. ENTRESTO [Suspect]
     Active Substance: SACUBITRIL\VALSARTAN
     Indication: CARDIAC FAILURE
     Dosage: UNK
     Route: 048

REACTIONS (9)
  - Pulmonary congestion [Unknown]
  - Dyspnoea [Unknown]
  - Viral infection [Unknown]
  - Pulmonary oedema [Unknown]
  - Condition aggravated [Unknown]
  - Peripheral swelling [Unknown]
  - Cough [Unknown]
  - Choking [Unknown]
  - Nasopharyngitis [Unknown]
